FAERS Safety Report 4887857-5 (Version None)
Quarter: 2006Q1

REPORT INFORMATION
  Report Type: 
  Country: None (occurrence: None)
  Receive Date: 20060123
  Receipt Date: 20050228
  Transmission Date: 20060701
  Serious: Yes (Hospitalization, Other)
  Sender: FDA-Public Use
  Company Number: US-MERCK-0503USA00272

PATIENT
  Age: 71 Year
  Sex: Female
  Weight: 106 kg

DRUGS (18)
  1. VIOXX [Suspect]
     Indication: OSTEOARTHRITIS
     Route: 048
     Dates: start: 20000101, end: 20040101
  2. TOPROL-XL [Concomitant]
     Route: 065
  3. NORVASC [Concomitant]
     Route: 065
  4. ACETAMINOPHEN AND CODEINE PHOSPHATE [Concomitant]
     Route: 065
  5. ASPIRIN [Concomitant]
     Route: 065
  6. LESCOL [Concomitant]
     Route: 065
  7. IBUPROFEN [Concomitant]
     Route: 065
  8. CYTOTEC [Concomitant]
     Route: 065
  9. ZESTRIL [Concomitant]
     Route: 065
  10. LIPITOR [Concomitant]
     Route: 065
  11. NITROQUICK [Concomitant]
     Route: 065
  12. LISINOPRIL [Concomitant]
     Route: 065
  13. FUROSEMIDE [Concomitant]
     Route: 065
  14. LOVASTATIN [Concomitant]
     Route: 065
  15. DOCUSATE CALCIUM [Concomitant]
     Route: 065
  16. MECLIZINE [Concomitant]
     Route: 065
  17. MINIPRIN [Concomitant]
     Route: 065
  18. PLAVIX [Concomitant]
     Route: 065

REACTIONS (10)
  - APPENDIX DISORDER [None]
  - CARDIAC FAILURE CONGESTIVE [None]
  - CHOLECYSTITIS [None]
  - CORONARY ARTERY DISEASE [None]
  - GASTROOESOPHAGEAL REFLUX DISEASE [None]
  - HYPERTENSIVE HEART DISEASE [None]
  - MYOCARDIAL INFARCTION [None]
  - TACHYCARDIA [None]
  - VENTRICULAR DYSFUNCTION [None]
  - VISUAL ACUITY REDUCED [None]
